APPROVED DRUG PRODUCT: LENALIDOMIDE
Active Ingredient: LENALIDOMIDE
Strength: 2.5MG
Dosage Form/Route: CAPSULE;ORAL
Application: A209348 | Product #001 | TE Code: AB
Applicant: DR REDDYS LABORATORIES LTD
Approved: Oct 14, 2021 | RLD: No | RS: No | Type: RX